FAERS Safety Report 14459531 (Version 1)
Quarter: 2018Q1

REPORT INFORMATION
  Report Type: Spontaneous
  Country: US (occurrence: US)
  Receive Date: 20180129
  Receipt Date: 20180129
  Transmission Date: 20180509
  Serious: No
  Sender: FDA-Public Use
  Company Number: None

PATIENT
  Age: 65 Year
  Sex: Female

DRUGS (2)
  1. NADOLOL TABLETS, USP [Suspect]
     Active Substance: NADOLOL
     Indication: MITRAL VALVE REPLACEMENT
     Route: 048
  2. LOSARTAN. [Concomitant]
     Active Substance: LOSARTAN

REACTIONS (2)
  - Heart rate increased [None]
  - Heart rate irregular [None]

NARRATIVE: CASE EVENT DATE: 20180129
